FAERS Safety Report 5061884-X (Version None)
Quarter: 2006Q3

REPORT INFORMATION
  Report Type: 
  Country: None (occurrence: None)
  Receive Date: 20060726
  Receipt Date: 20060703
  Transmission Date: 20061208
  Serious: Yes (Hospitalization, Other)
  Sender: FDA-Public Use
  Company Number: PHNU2006DE02432

PATIENT
  Age: 46 Year
  Sex: Male

DRUGS (1)
  1. LEPONEX [Suspect]
     Indication: SCHIZOPHRENIA
     Dosage: 100 TO 200 MG/DAY
     Route: 048
     Dates: start: 19940101

REACTIONS (2)
  - APHASIA [None]
  - CEREBRAL INFARCTION [None]
